FAERS Safety Report 9643250 (Version 3)
Quarter: 2014Q1

REPORT INFORMATION
  Report Type: Spontaneous
  Country: AT (occurrence: AT)
  Receive Date: 20131024
  Receipt Date: 20140217
  Transmission Date: 20141002
  Serious: Yes (Life-Threatening, Other)
  Sender: FDA-Public Use
  Company Number: AT-ELI_LILLY_AND_COMPANY-AT201310004377

PATIENT
  Age: 18 Year
  Sex: Male

DRUGS (7)
  1. ZYPREXA [Suspect]
     Indication: PRODUCT USED FOR UNKNOWN INDICATION
     Dosage: 10 MG, QD
     Route: 030
     Dates: start: 20130812, end: 20130813
  2. HALDOL /00027402/ [Suspect]
     Indication: PRODUCT USED FOR UNKNOWN INDICATION
     Dosage: 15 MG, QD
     Route: 042
     Dates: start: 20130806, end: 20130814
  3. DORMICUM [Suspect]
     Indication: PRODUCT USED FOR UNKNOWN INDICATION
     Dosage: 10 MG, OTHER
     Route: 042
     Dates: start: 20130813, end: 20130814
  4. DEXMEDETOMIDINE [Concomitant]
     Dosage: UNK UNK, QD
  5. TRITTICO [Concomitant]
     Dosage: 150 MG, UNKNOWN
     Route: 048
     Dates: start: 20130807, end: 20130813
  6. PANTOLOC                           /01263204/ [Concomitant]
     Dosage: 40 MG, UNKNOWN
     Route: 042
     Dates: start: 20130807, end: 20130814
  7. TEMESTA                            /00273201/ [Concomitant]
     Dosage: 1 DF, OTHER
     Route: 042
     Dates: start: 20130806, end: 20130812

REACTIONS (7)
  - Pulmonary embolism [Recovered/Resolved]
  - Dilatation ventricular [Recovered/Resolved]
  - Deep vein thrombosis [Recovered/Resolved]
  - Depressed level of consciousness [Recovered/Resolved]
  - Blood pressure immeasurable [Recovered/Resolved]
  - Tachycardia [Recovered/Resolved]
  - Faecal incontinence [Recovered/Resolved]
